FAERS Safety Report 5221441-9 (Version None)
Quarter: 2007Q1

REPORT INFORMATION
  Report Type: 
  Country: None (occurrence: None)
  Receive Date: 20070126
  Receipt Date: 20070116
  Transmission Date: 20070707
  Serious: Yes (Hospitalization)
  Sender: FDA-Public Use
  Company Number: JP-MERCK-0701USA03876

PATIENT
  Age: 79 Year
  Sex: Female

DRUGS (6)
  1. FOSAMAX [Suspect]
     Indication: OSTEOPOROSIS
     Route: 048
     Dates: start: 20061114
  2. MOBIC [Suspect]
     Indication: ARTHRALGIA
     Route: 048
  3. NIVADIL [Concomitant]
     Indication: HYPERTENSION
     Route: 048
  4. FRANDOL [Concomitant]
     Route: 048
  5. LORMETAZEPAM [Concomitant]
     Indication: OSTEOPOROSIS
     Route: 048
  6. ELCITONIN [Concomitant]
     Indication: BACK PAIN
     Route: 030
     Dates: start: 20061101

REACTIONS (1)
  - UPPER GASTROINTESTINAL HAEMORRHAGE [None]
